FAERS Safety Report 12066604 (Version 1)
Quarter: 2016Q1

REPORT INFORMATION
  Report Type: Spontaneous
  Country: US (occurrence: US)
  Receive Date: 20160211
  Receipt Date: 20160211
  Transmission Date: 20160526
  Serious: Yes (Other)
  Sender: FDA-Public Use
  Company Number: US-ABBVIE-16P-163-1531029-00

PATIENT
  Sex: Female
  Weight: 58.97 kg

DRUGS (8)
  1. LEXAPRO [Concomitant]
     Active Substance: ESCITALOPRAM OXALATE
     Indication: DEPRESSION
     Dosage: A DAY
     Route: 048
  2. METHOTREXATE [Suspect]
     Active Substance: METHOTREXATE
     Indication: RHEUMATOID ARTHRITIS
     Dosage: 8-10MG A WEEK
     Route: 058
  3. XELJANZ [Suspect]
     Active Substance: TOFACITINIB CITRATE
     Indication: RHEUMATOID ARTHRITIS
     Route: 048
  4. LEXAPRO [Concomitant]
     Active Substance: ESCITALOPRAM OXALATE
     Dosage: A DAY
     Route: 048
  5. METHOTREXATE [Suspect]
     Active Substance: METHOTREXATE
     Dosage: 8-10MG A WEEK
     Route: 058
     Dates: start: 2013
  6. HUMIRA [Suspect]
     Active Substance: ADALIMUMAB
     Indication: RHEUMATOID ARTHRITIS
     Dosage: JUST WHILE ON GENERIC METHOTREXATE
     Route: 065
     Dates: start: 2010
  7. HUMIRA [Suspect]
     Active Substance: ADALIMUMAB
     Dosage: JUST WHILE ON GENERIC METHOTREXATE
     Route: 065
     Dates: start: 2013
  8. XELJANZ [Suspect]
     Active Substance: TOFACITINIB CITRATE
     Route: 048
     Dates: start: 201412

REACTIONS (7)
  - Root canal infection [Recovered/Resolved]
  - Gingivitis [Recovered/Resolved]
  - Oral infection [Recovered/Resolved]
  - Pain [Unknown]
  - Incorrect dose administered [Unknown]
  - Eye infection [Recovered/Resolved]
  - Blood homocysteine increased [Not Recovered/Not Resolved]

NARRATIVE: CASE EVENT DATE: 2013
